FAERS Safety Report 15307224 (Version 9)
Quarter: 2019Q2

REPORT INFORMATION
  Report Type: Spontaneous
  Country: US (occurrence: US)
  Receive Date: 20180822
  Receipt Date: 20190516
  Transmission Date: 20190711
  Serious: Yes (Other)
  Sender: FDA-Public Use
  Company Number: US-GLAXOSMITHKLINE-US2018GSK152041

PATIENT
  Sex: Male
  Weight: 83 kg

DRUGS (3)
  1. PREVACID [Suspect]
     Active Substance: LANSOPRAZOLE
     Indication: GASTROOESOPHAGEAL REFLUX DISEASE
     Dosage: 15 MG, UNK
     Route: 065
  2. OMEPRAZOLE. [Suspect]
     Active Substance: OMEPRAZOLE
     Indication: GASTROOESOPHAGEAL REFLUX DISEASE
     Dosage: 20 MG, QD
     Route: 048
  3. PANTOPRAZOLE [Suspect]
     Active Substance: PANTOPRAZOLE
     Indication: GASTROOESOPHAGEAL REFLUX DISEASE
     Dosage: 40 MG, BID
     Route: 048

REACTIONS (20)
  - Gastric cancer [Unknown]
  - Hypertensive nephropathy [Unknown]
  - Gastric polyps [Unknown]
  - Acute kidney injury [Unknown]
  - Haematuria [Unknown]
  - Urine flow decreased [Unknown]
  - Micturition urgency [Unknown]
  - Chronic kidney disease [Unknown]
  - Renal cyst [Unknown]
  - Blood creatinine increased [Unknown]
  - Renal injury [Unknown]
  - Pollakiuria [Unknown]
  - Renal impairment [Unknown]
  - Nocturia [Unknown]
  - Nephrolithiasis [Unknown]
  - Nephropathy [Unknown]
  - Blood urea increased [Unknown]
  - Urinary incontinence [Unknown]
  - Renal failure [Unknown]
  - Proteinuria [Unknown]
